FAERS Safety Report 6941157-8 (Version None)
Quarter: 2010Q3

REPORT INFORMATION
  Report Type: 
  Country: None (occurrence: None)
  Receive Date: 20100825
  Receipt Date: 20100603
  Transmission Date: 20110219
  Serious: No
  Sender: FDA-Public Use
  Company Number: US-BRISTOL-MYERS SQUIBB COMPANY-15133622

PATIENT
  Age: 78 Year
  Sex: Female

DRUGS (2)
  1. ONGLYZA [Suspect]
     Indication: DIABETES MELLITUS
  2. INSULIN [Concomitant]

REACTIONS (1)
  - NAUSEA [None]
